FAERS Safety Report 13127519 (Version 5)
Quarter: 2018Q2

REPORT INFORMATION
  Report Type: Spontaneous
  Country: US (occurrence: US)
  Receive Date: 20170118
  Receipt Date: 20180615
  Transmission Date: 20180711
  Serious: Yes (Other)
  Sender: FDA-Public Use
  Company Number: US-ASTRAZENECA-2017SE03350

PATIENT
  Age: 67 Year
  Sex: Male
  Weight: 86.2 kg

DRUGS (48)
  1. VASOTEC [Concomitant]
     Active Substance: ENALAPRIL MALEATE
     Route: 065
  2. ALTACE [Concomitant]
     Active Substance: RAMIPRIL
     Route: 065
  3. AVAPRO [Concomitant]
     Active Substance: IRBESARTAN
     Route: 065
  4. ACTOS [Concomitant]
     Active Substance: PIOGLITAZONE HYDROCHLORIDE
     Route: 048
  5. ASPIRINE [Concomitant]
     Active Substance: ASPIRIN
     Route: 048
  6. SIMCOR [Concomitant]
     Active Substance: NIACIN\SIMVASTATIN
     Dosage: 1000-20 MG
     Route: 048
  7. HYDROCHLOROTHIAZIDE. [Concomitant]
     Active Substance: HYDROCHLOROTHIAZIDE
     Route: 065
  8. NEXIUM [Suspect]
     Active Substance: ESOMEPRAZOLE MAGNESIUM
     Indication: GASTROOESOPHAGEAL REFLUX DISEASE
     Route: 048
     Dates: start: 2010, end: 201102
  9. PROTONIX [Suspect]
     Active Substance: PANTOPRAZOLE SODIUM
     Indication: GASTROOESOPHAGEAL REFLUX DISEASE
     Dosage: 40.0MG UNKNOWN
     Route: 065
     Dates: start: 20160318
  10. CAPOTEN [Concomitant]
     Active Substance: CAPTOPRIL
     Route: 065
  11. TAMSULOSIN [Concomitant]
     Active Substance: TAMSULOSIN
     Dosage: 2 CAPSULES BY MOUTH DAILY
     Route: 048
  12. NEXIUM [Suspect]
     Active Substance: ESOMEPRAZOLE MAGNESIUM
     Indication: GASTROOESOPHAGEAL REFLUX DISEASE
     Route: 048
     Dates: start: 20030321
  13. NEXIUM [Suspect]
     Active Substance: ESOMEPRAZOLE MAGNESIUM
     Indication: GASTROOESOPHAGEAL REFLUX DISEASE
     Dosage: 40.0MG UNKNOWN
     Route: 048
     Dates: start: 20110104
  14. PROTONIX [Suspect]
     Active Substance: PANTOPRAZOLE SODIUM
     Indication: GASTROOESOPHAGEAL REFLUX DISEASE
     Route: 065
     Dates: start: 2007, end: 2016
  15. PREVACID [Suspect]
     Active Substance: LANSOPRAZOLE
     Indication: GASTROOESOPHAGEAL REFLUX DISEASE
     Route: 048
     Dates: start: 2015
  16. MICARDIS [Concomitant]
     Active Substance: TELMISARTAN
     Route: 065
  17. LASIX [Concomitant]
     Active Substance: FUROSEMIDE
     Route: 065
  18. RANITIDINE HYDROCHLORIDE. [Concomitant]
     Active Substance: RANITIDINE HYDROCHLORIDE
     Dates: start: 2010
  19. GLYCOLIC ACID [Concomitant]
     Active Substance: GLYCOLIC ACID
  20. PREVACID [Suspect]
     Active Substance: LANSOPRAZOLE
     Indication: GASTROOESOPHAGEAL REFLUX DISEASE
     Route: 048
     Dates: start: 2013
  21. LISINOPRIL/LISINOP/HCTZ [Concomitant]
     Dosage: 20-25 MG, UNKNOWN
     Route: 065
     Dates: start: 20110101
  22. LISINOPRIL. [Concomitant]
     Active Substance: LISINOPRIL
     Route: 048
  23. EDARBI [Concomitant]
     Active Substance: AZILSARTAN KAMEDOXOMIL
     Route: 065
  24. COZAAR [Concomitant]
     Active Substance: LOSARTAN POTASSIUM
     Route: 065
  25. AMLODIPINE [Concomitant]
     Active Substance: AMLODIPINE BESYLATE
     Route: 048
  26. MAGNESIUM [Concomitant]
     Active Substance: MAGNESIUM
  27. KRILL OIL [Concomitant]
     Active Substance: DIETARY SUPPLEMENT
  28. PROTONIX [Suspect]
     Active Substance: PANTOPRAZOLE SODIUM
     Indication: GASTROOESOPHAGEAL REFLUX DISEASE
     Route: 065
     Dates: start: 2007, end: 2009
  29. JANUMET [Concomitant]
     Active Substance: METFORMIN HYDROCHLORIDE\SITAGLIPTIN PHOSPHATE
     Dosage: 50-1000 MG, UNKNOWN 1 BID
     Route: 048
     Dates: start: 20110101
  30. METHYLPREDNISOLONE. [Concomitant]
     Active Substance: METHYLPREDNISOLONE
     Dates: start: 2005
  31. PRILOSEC [Suspect]
     Active Substance: OMEPRAZOLE MAGNESIUM
     Route: 048
  32. PRINIVIL [Concomitant]
     Active Substance: LISINOPRIL
     Route: 065
  33. SIMVASTATIN. [Concomitant]
     Active Substance: SIMVASTATIN
     Route: 048
  34. SILDENAFIL. [Concomitant]
     Active Substance: SILDENAFIL
     Route: 048
  35. CIPROFLOXACIN. [Concomitant]
     Active Substance: CIPROFLOXACIN
     Indication: INFECTION
     Dates: start: 2005, end: 2011
  36. NEXIUM [Suspect]
     Active Substance: ESOMEPRAZOLE MAGNESIUM
     Indication: GASTROOESOPHAGEAL REFLUX DISEASE
     Route: 048
     Dates: start: 2003, end: 2014
  37. ACYCLOVIR. [Concomitant]
     Active Substance: ACYCLOVIR
     Indication: VIRAL INFECTION
     Dosage: 400.0MG UNKNOWN
     Route: 065
     Dates: start: 20110104
  38. HYDROCODONE [Concomitant]
     Active Substance: HYDROCODONE
     Indication: PAIN
     Route: 065
     Dates: start: 2005
  39. ACCUPRIL [Concomitant]
     Active Substance: QUINAPRIL HYDROCHLORIDE
     Route: 065
  40. TESTOSTERONE. [Concomitant]
     Active Substance: TESTOSTERONE
     Dates: start: 2012, end: 2014
  41. DEXILANT [Suspect]
     Active Substance: DEXLANSOPRAZOLE
     Route: 065
  42. ZEGERID [Suspect]
     Active Substance: OMEPRAZOLE\SODIUM BICARBONATE
     Route: 065
  43. ACYCLOVIR. [Concomitant]
     Active Substance: ACYCLOVIR
     Indication: VIRAL INFECTION
     Dosage: 400.0MG UNKNOWN
     Route: 065
     Dates: start: 2007, end: 2011
  44. LOTENSIN [Concomitant]
     Active Substance: BENAZEPRIL HYDROCHLORIDE
     Route: 065
  45. PIOGLITAZONE. [Concomitant]
     Active Substance: PIOGLITAZONE
     Route: 048
  46. LISINOPRIL. [Concomitant]
     Active Substance: LISINOPRIL
     Indication: BLOOD PRESSURE INCREASED
     Dates: start: 2012, end: 2015
  47. CINNAMOMUM VERUM BARK [Concomitant]
     Active Substance: CINNAMON
  48. ALL [Concomitant]
     Dates: start: 2011

REACTIONS (6)
  - Hypertension [Unknown]
  - Chronic kidney disease [Not Recovered/Not Resolved]
  - Renal failure [Unknown]
  - Diabetes mellitus [Unknown]
  - Gout [Unknown]
  - Renal impairment [Unknown]

NARRATIVE: CASE EVENT DATE: 2011
